FAERS Safety Report 9787486 (Version 2)
Quarter: 2013Q4

REPORT INFORMATION
  Report Type: Spontaneous
  Country: DE (occurrence: DE)
  Receive Date: 20131230
  Receipt Date: 20131230
  Transmission Date: 20140711
  Serious: Yes (Other)
  Sender: FDA-Public Use
  Company Number: DE-BRISTOL-MYERS SQUIBB COMPANY-19538966

PATIENT
  Age: 29 Year
  Sex: Male
  Weight: 100 kg

DRUGS (4)
  1. ABILIFY TABS 10 MG [Suspect]
     Indication: SCHIZOPHRENIA, PARANOID TYPE
     Dates: start: 2008
  2. AMISULPRIDE [Concomitant]
     Dosage: 3X DAILY 1TABLET
  3. GEMFIBROZIL [Concomitant]
     Indication: BLOOD TRIGLYCERIDES
  4. FISH OIL [Concomitant]

REACTIONS (2)
  - Lipase abnormal [Not Recovered/Not Resolved]
  - Haemochromatosis [Not Recovered/Not Resolved]
